FAERS Safety Report 9691084 (Version 1)
Quarter: 2013Q4

REPORT INFORMATION
  Report Type: Spontaneous
  Country: US (occurrence: US)
  Receive Date: 20131115
  Receipt Date: 20131115
  Transmission Date: 20140711
  Serious: Yes (Other)
  Sender: FDA-Public Use
  Company Number: US-AMGEN-USASP2013080660

PATIENT
  Sex: Female

DRUGS (1)
  1. ENBREL [Suspect]
     Indication: ARTHRITIS
     Dosage: UNK UNK, QWK
     Route: 065

REACTIONS (4)
  - Pneumonia [Unknown]
  - Nervous system disorder [Unknown]
  - Injection site pain [Unknown]
  - Injection site bruising [Unknown]
